FAERS Safety Report 16029045 (Version 1)
Quarter: 2019Q1

REPORT INFORMATION
  Report Type: Spontaneous
  Country: US (occurrence: US)
  Receive Date: 20190204
  Receipt Date: 20190204
  Transmission Date: 20190418
  Serious: No
  Sender: FDA-Public Use
  Company Number: None

PATIENT
  Age: 34 Year
  Sex: Male

DRUGS (2)
  1. GLEOSTINE [Suspect]
     Active Substance: LOMUSTINE
  2. GLEOSTINE [Suspect]
     Active Substance: LOMUSTINE
     Dates: start: 20180816

REACTIONS (1)
  - Nausea [None]

NARRATIVE: CASE EVENT DATE: 20190204
